FAERS Safety Report 20000358 (Version 1)
Quarter: 2021Q4

REPORT INFORMATION
  Report Type: Spontaneous
  Country: MX (occurrence: MX)
  Receive Date: 20211027
  Receipt Date: 20211027
  Transmission Date: 20220303
  Serious: Yes (Other)
  Sender: FDA-Public Use
  Company Number: MX-SA-SAC20210205001446

PATIENT
  Age: 33 Year
  Sex: Female
  Weight: 72.5 kg

DRUGS (1)
  1. ENOXAPARIN SODIUM [Suspect]
     Active Substance: ENOXAPARIN SODIUM
     Indication: Abortion threatened
     Dosage: UNK UNK, QD
     Route: 058
     Dates: start: 20210128, end: 202104

REACTIONS (3)
  - Abortion spontaneous incomplete [Recovered/Resolved]
  - Maternal exposure during pregnancy [Unknown]
  - Product use in unapproved indication [Unknown]

NARRATIVE: CASE EVENT DATE: 20210128
